FAERS Safety Report 5097333-5 (Version None)
Quarter: 2006Q3

REPORT INFORMATION
  Report Type: 
  Country: None (occurrence: None)
  Receive Date: 20060906
  Receipt Date: 20060830
  Transmission Date: 20061208
  Serious: Yes (Death, Hospitalization)
  Sender: FDA-Public Use
  Company Number: FR-GLAXOSMITHKLINE-B0436508A

PATIENT
  Age: 19 Month
  Sex: Female
  Weight: 10 kg

DRUGS (9)
  1. ZOPHREN [Suspect]
     Indication: NAUSEA
     Dosage: 4MG TWICE PER DAY
     Route: 048
     Dates: start: 20060524
  2. ARACYTINE [Suspect]
     Dosage: 26MG PER DAY
     Route: 037
     Dates: start: 20060524, end: 20060524
  3. DAUNOXOME [Suspect]
     Dosage: 100MG PER DAY
     Route: 042
     Dates: start: 20060525, end: 20060525
  4. ELITEK [Suspect]
     Indication: GOUT
     Dosage: 1.5MG PER DAY
     Route: 042
     Dates: start: 20060519, end: 20060526
  5. FLUDARABINE [Suspect]
     Dosage: 10MG PER DAY
     Route: 042
     Dates: start: 20060525, end: 20060529
  6. GRANOCYTE [Suspect]
     Indication: AGRANULOCYTOSIS
     Dosage: 13MU PER DAY
     Route: 042
     Dates: start: 20060524, end: 20060529
  7. CARDIOXANE [Concomitant]
     Route: 065
  8. PLITICAN [Concomitant]
     Route: 065
     Dates: start: 20060524
  9. BACTRIM [Concomitant]
     Route: 065
     Dates: start: 20060524

REACTIONS (6)
  - ACUTE PULMONARY OEDEMA [None]
  - BONE MARROW FAILURE [None]
  - CARDIAC ARREST [None]
  - CARDIAC FAILURE [None]
  - TACHYCARDIA [None]
  - TACHYPNOEA [None]
